FAERS Safety Report 14515930 (Version 1)
Quarter: 2018Q1

REPORT INFORMATION
  Report Type: Spontaneous
  Country: US (occurrence: US)
  Receive Date: 20180211
  Receipt Date: 20180211
  Transmission Date: 20180509
  Serious: No
  Sender: FDA-Public Use
  Company Number: US-TEVA-2018-US-848470

PATIENT
  Sex: Female
  Weight: 41 kg

DRUGS (1)
  1. ROSUVASTATIN. [Suspect]
     Active Substance: ROSUVASTATIN
     Indication: BLOOD CHOLESTEROL
     Route: 065
     Dates: start: 201704

REACTIONS (3)
  - Blood cholesterol increased [Unknown]
  - Stress [Unknown]
  - Skin disorder [Unknown]

NARRATIVE: CASE EVENT DATE: 201704
